FAERS Safety Report 5525166-1 (Version None)
Quarter: 2007Q4

REPORT INFORMATION
  Report Type: 
  Country: None (occurrence: None)
  Receive Date: 20071119
  Receipt Date: 20071112
  Transmission Date: 20080405
  Serious: Yes (Hospitalization)
  Sender: FDA-Public Use
  Company Number: 2007SP017991

PATIENT
  Age: 47 Year
  Sex: Female
  Weight: 71.2147 kg

DRUGS (2)
  1. PEG-INTRON [Suspect]
     Indication: HEPATITIS C
     Dosage: 96 MCG; QW; SC
     Route: 058
     Dates: start: 20070607, end: 20070721
  2. REBETOL [Suspect]
     Indication: HEPATITIS C
     Dosage: 1000 MG; QD; PO
     Route: 048
     Dates: start: 20070607, end: 20070721

REACTIONS (3)
  - HAEMATURIA [None]
  - HYPERSENSITIVITY [None]
  - PNEUMONIA [None]
